FAERS Safety Report 5455327-1 (Version None)
Quarter: 2007Q3

REPORT INFORMATION
  Report Type: 
  Country: None (occurrence: None)
  Receive Date: 20070913
  Receipt Date: 20070913
  Transmission Date: 20080115
  Serious: Yes (Hospitalization)
  Sender: FDA-Public Use
  Company Number: None

PATIENT
  Age: 71 Year
  Sex: Male
  Weight: 79.5 kg

DRUGS (3)
  1. ERLOTINIB, 100MG, OSI PHARMACEUTICALS [Suspect]
     Indication: RENAL CANCER METASTATIC
     Dosage: 100MG ONCE A DAY ORAL
     Route: 048
     Dates: start: 20070808, end: 20070825
  2. SUTENT [Suspect]
     Indication: RENAL CANCER METASTATIC
     Dosage: 50MG ONCE A DAY ORAL
     Route: 048
     Dates: start: 20070815, end: 20070825
  3. AMITRIPTYLINE HCL [Concomitant]

REACTIONS (3)
  - BRONCHOPLEURAL FISTULA [None]
  - BULLOUS LUNG DISEASE [None]
  - PNEUMOTHORAX [None]
